FAERS Safety Report 9604568 (Version 1)
Quarter: 2013Q4

REPORT INFORMATION
  Report Type: Spontaneous
  Country: FR (occurrence: FR)
  Receive Date: 20131008
  Receipt Date: 20131008
  Transmission Date: 20140711
  Serious: Yes (Hospitalization)
  Sender: FDA-Public Use
  Company Number: FR-SA-2013SA096580

PATIENT
  Age: 55 Year
  Sex: Female

DRUGS (6)
  1. OXALIPLATIN [Suspect]
     Indication: LYMPHANGITIS
     Route: 042
     Dates: start: 201301, end: 201306
  2. FLUOROURACIL [Suspect]
     Indication: ANAL CANCER
     Route: 042
     Dates: start: 20120730, end: 20120927
  3. FLUOROURACIL [Suspect]
     Indication: LYMPHANGITIS
     Route: 042
     Dates: start: 20120730, end: 20120927
  4. FLUOROURACIL [Suspect]
     Indication: ANAL CANCER
     Route: 042
     Dates: start: 201301, end: 201306
  5. FLUOROURACIL [Suspect]
     Indication: LYMPHANGITIS
     Route: 042
     Dates: start: 201301, end: 201306
  6. AMETYCINE [Suspect]
     Indication: ANAL CANCER
     Route: 042
     Dates: start: 20120730, end: 20120924

REACTIONS (3)
  - Pulmonary arterial hypertension [Not Recovered/Not Resolved]
  - Dyspnoea [Not Recovered/Not Resolved]
  - Fatigue [Not Recovered/Not Resolved]
